FAERS Safety Report 23590450 (Version 4)
Quarter: 2024Q2

REPORT INFORMATION
  Report Type: Report from Study
  Country: US (occurrence: US)
  Receive Date: 20240304
  Receipt Date: 20240610
  Transmission Date: 20240716
  Serious: Yes (Hospitalization)
  Sender: FDA-Public Use
  Company Number: US-GILEAD-2024-0661751

PATIENT
  Sex: Female

DRUGS (5)
  1. AMBRISENTAN [Suspect]
     Active Substance: AMBRISENTAN
     Indication: Pulmonary arterial hypertension
     Dosage: 10 MG, QD
     Route: 065
     Dates: start: 20230124
  2. AMBRISENTAN [Suspect]
     Active Substance: AMBRISENTAN
     Indication: Pulmonary arterial hypertension
     Dosage: 10 MG, QD
     Route: 065
     Dates: start: 20230417
  3. SILDENAFIL [Concomitant]
     Active Substance: SILDENAFIL
  4. ADEMPAS [Concomitant]
     Active Substance: RIOCIGUAT
  5. UPTRAVI [Concomitant]
     Active Substance: SELEXIPAG

REACTIONS (11)
  - Swelling [Unknown]
  - Hypervolaemia [Unknown]
  - Dyspnoea [Unknown]
  - Fluid retention [Unknown]
  - Pain in extremity [Unknown]
  - Diarrhoea [Unknown]
  - Dyspnoea exertional [Unknown]
  - Oedema peripheral [Unknown]
  - Headache [Unknown]
  - Vomiting [Unknown]
  - Constipation [Not Recovered/Not Resolved]
